FAERS Safety Report 5010722-X (Version None)
Quarter: 2006Q2

REPORT INFORMATION
  Report Type: 
  Country: None (occurrence: None)
  Receive Date: 20060523
  Receipt Date: 20060510
  Transmission Date: 20061013
  Serious: Yes (Other)
  Sender: FDA-Public Use
  Company Number: 2006057350

PATIENT
  Age: 60 Year
  Sex: Male

DRUGS (3)
  1. VIAGRA [Suspect]
     Indication: ILL-DEFINED DISORDER
     Dosage: 100 MG
     Dates: start: 19980101
  2. PRINIVIL [Concomitant]
  3. ZOLOFT [Concomitant]

REACTIONS (3)
  - BLINDNESS UNILATERAL [None]
  - COLON CANCER [None]
  - OPTIC ISCHAEMIC NEUROPATHY [None]
